FAERS Safety Report 10525544 (Version 2)
Quarter: 2014Q4

REPORT INFORMATION
  Report Type: Spontaneous
  Country: CA (occurrence: CA)
  Receive Date: 20141017
  Receipt Date: 20141202
  Transmission Date: 20150528
  Serious: Yes (Life-Threatening)
  Sender: FDA-Public Use
  Company Number: CA-TEVA-514810USA

PATIENT
  Age: 51 Year
  Sex: Male
  Weight: 130 kg

DRUGS (1)
  1. RATIO-NYSTATIN [Suspect]
     Active Substance: NYSTATIN
     Indication: CANDIDA INFECTION
     Dosage: 4 ML DAILY; 100,000 U/ML; 4ML ONCE DAILY ,AS NEEDED; HAS BEEN USING FOR A FEW YEARS
     Route: 048
     Dates: start: 2011

REACTIONS (5)
  - Burning sensation [Recovering/Resolving]
  - Drug ineffective [Unknown]
  - Swelling [Recovering/Resolving]
  - Poisoning [Recovering/Resolving]
  - Adverse event [Recovering/Resolving]

NARRATIVE: CASE EVENT DATE: 20140925
